FAERS Safety Report 6522315-3 (Version None)
Quarter: 2009Q4

REPORT INFORMATION
  Report Type: 
  Country: None (occurrence: None)
  Receive Date: 20091230
  Receipt Date: 20091221
  Transmission Date: 20100525
  Serious: Yes (Other)
  Sender: FDA-Public Use
  Company Number: B0609067A

PATIENT
  Age: 5 Year
  Sex: Female

DRUGS (2)
  1. RELENZA [Suspect]
     Indication: INFLUENZA
     Dosage: 10MG TWICE PER DAY
     Route: 055
     Dates: start: 20091102
  2. HOKUNALIN [Concomitant]
     Indication: COUGH
     Route: 062
     Dates: start: 20091102

REACTIONS (1)
  - ERYTHEMA MULTIFORME [None]
